FAERS Safety Report 11544198 (Version 2)
Quarter: 2015Q4

REPORT INFORMATION
  Report Type: Spontaneous
  Country: FR (occurrence: FR)
  Receive Date: 20150922
  Receipt Date: 20151019
  Transmission Date: 20160304
  Serious: Yes (Other)
  Sender: FDA-Public Use
  Company Number: TPU2015-00439

PATIENT
  Age: 77 Year
  Sex: Male

DRUGS (4)
  1. LYRICA [Concomitant]
     Active Substance: PREGABALIN
     Dates: start: 20150720
  2. LAROXYL [Concomitant]
     Active Substance: AMITRIPTYLINE
  3. LIDODERM [Suspect]
     Active Substance: LIDOCAINE
     Indication: PROCEDURAL PAIN
     Route: 061
     Dates: start: 20150717, end: 20150721
  4. COVERSYL [Concomitant]
     Active Substance: PERINDOPRIL

REACTIONS (5)
  - Drug ineffective [Recovered/Resolved]
  - Pain [Recovered/Resolved]
  - Overdose [Recovered/Resolved]
  - Oedema [Recovered/Resolved]
  - Musculoskeletal discomfort [Recovered/Resolved]

NARRATIVE: CASE EVENT DATE: 20150717
